FAERS Safety Report 5820529-9 (Version None)
Quarter: 2008Q3

REPORT INFORMATION
  Report Type: 
  Country: None (occurrence: None)
  Receive Date: 20080724
  Receipt Date: 20070921
  Transmission Date: 20090109
  Serious: No
  Sender: FDA-Public Use
  Company Number: A0683542A

PATIENT
  Age: 79 Year
  Sex: Male

DRUGS (6)
  1. AVANDIA [Suspect]
     Dosage: 4MG PER DAY
     Route: 048
     Dates: start: 20070821
  2. GEMFIBROZIL [Concomitant]
  3. SIMVASTATIN [Concomitant]
  4. ASPIRIN [Concomitant]
     Dosage: 81MG UNKNOWN
  5. LEVITRA [Concomitant]
  6. MUSE [Concomitant]

REACTIONS (1)
  - DRUG INEFFECTIVE [None]
